FAERS Safety Report 5575038-1 (Version None)
Quarter: 2007Q4

REPORT INFORMATION
  Report Type: 
  Country: None (occurrence: None)
  Receive Date: 20071221
  Receipt Date: 20071221
  Transmission Date: 20080405
  Serious: Yes (Hospitalization)
  Sender: FDA-Public Use
  Company Number: None

PATIENT
  Sex: Male
  Weight: 100.9 kg

DRUGS (20)
  1. ALIMTA [Suspect]
     Dosage: 1045 MG
  2. ACTOSE [Concomitant]
  3. ALBUTEROL [Concomitant]
  4. ASPIRIN [Concomitant]
  5. COMPAZINE [Concomitant]
  6. DECADRON [Concomitant]
  7. DIGOXIN [Concomitant]
  8. DURAGESIC-100 [Concomitant]
  9. GLIPIZIDE [Concomitant]
  10. LISINOPRIL [Concomitant]
  11. PERCOCET [Concomitant]
  12. PHENEGRAN [Concomitant]
  13. PREDNISONE [Concomitant]
  14. SPRIVA [Concomitant]
  15. TOPROL-XL [Concomitant]
  16. TUSSIONEX ER [Concomitant]
  17. XOPENEX [Concomitant]
  18. ZANTAC [Concomitant]
  19. ZOCOR [Concomitant]
  20. ZOFRAN [Concomitant]

REACTIONS (6)
  - ATRIAL FIBRILLATION [None]
  - BODY TEMPERATURE INCREASED [None]
  - ELECTROLYTE IMBALANCE [None]
  - NEUTROPENIA [None]
  - PANCYTOPENIA [None]
  - VENTRICULAR FIBRILLATION [None]
